FAERS Safety Report 21483843 (Version 1)
Quarter: 2022Q4

REPORT INFORMATION
  Report Type: Spontaneous
  Country: US (occurrence: US)
  Receive Date: 20221020
  Receipt Date: 20221020
  Transmission Date: 20230113
  Serious: Yes (Other)
  Sender: FDA-Public Use
  Company Number: US-SA-SAC20221019000688

PATIENT
  Age: 15 Year
  Sex: Female

DRUGS (3)
  1. DUPIXENT [Suspect]
     Active Substance: DUPILUMAB
     Indication: Dermatitis atopic
     Dosage: 2 DF, 1X (2 PENS UNDER THE SKIN ON DAY 1 )
     Route: 058
     Dates: start: 20221012, end: 20221012
  2. DUPIXENT [Suspect]
     Active Substance: DUPILUMAB
     Dosage: 1 PEN ON DAY 15
     Route: 058
  3. EPINEPHRINE [Concomitant]
     Active Substance: EPINEPHRINE
     Indication: Anaphylactic reaction
     Dosage: UNK

REACTIONS (4)
  - Anaphylactic reaction [Unknown]
  - Dizziness [Unknown]
  - Pharyngeal swelling [Unknown]
  - Pharyngeal inflammation [Not Recovered/Not Resolved]

NARRATIVE: CASE EVENT DATE: 20221012
